FAERS Safety Report 13554218 (Version 1)
Quarter: 2017Q2

REPORT INFORMATION
  Report Type: Spontaneous
  Country: FR (occurrence: FR)
  Receive Date: 20170517
  Receipt Date: 20170517
  Transmission Date: 20170830
  Serious: Yes (Life-Threatening, Hospitalization)
  Sender: FDA-Public Use
  Company Number: FR-TEVA-767870ROM

PATIENT
  Age: 10 Year
  Sex: Female
  Weight: 16.3 kg

DRUGS (15)
  1. ZOPHREN [Concomitant]
     Active Substance: ONDANSETRON
  2. FORLAX [Concomitant]
     Active Substance: POLYETHYLENE GLYCOL 4000
  3. HOLOXAN [Suspect]
     Active Substance: IFOSFAMIDE
     Indication: EWING^S SARCOMA
     Dosage: VIDE PROTOCOL, COURSE 6
     Route: 042
     Dates: start: 20170328
  4. ETOPOSIDE MYLAN [Suspect]
     Active Substance: ETOPOSIDE
     Indication: EWING^S SARCOMA
     Dosage: VIDE PROTOCOL, COURSE 6
     Route: 042
     Dates: start: 20170328
  5. PHOSPHONEUROS [Concomitant]
     Active Substance: CALCIUM PHOSPHATE, DIBASIC, ANHYDROUS\MAGNESIUM GLYCEROPHOSPHATE\PHOSPHORIC ACID\SODIUM PHOSPHATE, DIBASIC
  6. DOXORUBICINE TEVA [Suspect]
     Active Substance: DOXORUBICIN
     Indication: EWING^S SARCOMA
     Dosage: VIDE PROTOCOL, COURSE 6
     Route: 042
     Dates: start: 20170328
  7. HYDROSOL POLYVITAMINE LABAZ [Concomitant]
     Route: 048
  8. VINCRISTINE HOSPIRA [Suspect]
     Active Substance: VINCRISTINE
     Indication: EWING^S SARCOMA
     Dosage: VIDE PROTOCOL, COURSE 6
     Route: 042
     Dates: start: 20170328
  9. DEBRIDAT [Concomitant]
     Active Substance: TRIMEBUTINE MALEATE
  10. SERETIDE [Concomitant]
     Active Substance: FLUTICASONE PROPIONATE\SALMETEROL XINAFOATE
  11. INEXIUM [Concomitant]
     Active Substance: ESOMEPRAZOLE
  12. NUTRI ENERGY MAX [Concomitant]
     Dosage: DIETARY SUPPLEMENT
  13. MAG 2 [Concomitant]
     Active Substance: MAGNESIUM CHLORIDE
  14. VOGALENE [Concomitant]
     Active Substance: METOPIMAZINE
  15. FILGASTRIM AMGEN [Concomitant]

REACTIONS (3)
  - Hypovolaemic shock [Recovered/Resolved]
  - Febrile bone marrow aplasia [Recovered/Resolved]
  - Diarrhoea [Recovered/Resolved]

NARRATIVE: CASE EVENT DATE: 20170405
